FAERS Safety Report 25307235 (Version 2)
Quarter: 2025Q2

REPORT INFORMATION
  Report Type: Spontaneous
  Country: US (occurrence: US)
  Receive Date: 20250513
  Receipt Date: 20250514
  Transmission Date: 20250717
  Serious: No
  Sender: PFIZER
  Company Number: US-PFIZER INC-PV202500055832

PATIENT
  Age: 64 Year
  Sex: Female

DRUGS (5)
  1. DOCETAXEL [Suspect]
     Active Substance: DOCETAXEL
     Indication: Breast cancer female
     Dates: start: 20210610, end: 20210610
  2. HERCEPTIN [Concomitant]
     Active Substance: TRASTUZUMAB
     Indication: Chemotherapy
  3. PERTUZUMAB [Concomitant]
     Active Substance: PERTUZUMAB
     Indication: Chemotherapy
  4. TRASTUZUMAB-DKST [Concomitant]
     Active Substance: TRASTUZUMAB-DKST
     Indication: Chemotherapy
  5. LETROZOLE [Concomitant]
     Active Substance: LETROZOLE
     Indication: Chemotherapy

REACTIONS (5)
  - Lacrimal structure injury [Not Recovered/Not Resolved]
  - Pinguecula [Not Recovered/Not Resolved]
  - Dry eye [Not Recovered/Not Resolved]
  - Keratitis [Not Recovered/Not Resolved]
  - Lacrimation increased [Not Recovered/Not Resolved]

NARRATIVE: CASE EVENT DATE: 20210601
